FAERS Safety Report 6428931-1 (Version None)
Quarter: 2009Q4

REPORT INFORMATION
  Report Type: 
  Country: None (occurrence: None)
  Receive Date: 20091104
  Receipt Date: 20091104
  Transmission Date: 20100525
  Serious: Yes (Life-Threatening, Hospitalization)
  Sender: FDA-Public Use
  Company Number: None

PATIENT
  Age: 73 Year
  Sex: Male
  Weight: 80.6 kg

DRUGS (2)
  1. WARFARIN SODIUM [Suspect]
     Indication: ATRIAL FIBRILLATION
     Dosage: 4.3 MG EVERY DAY PO
     Route: 048
     Dates: start: 20090612, end: 20090714
  2. ASPIRIN [Suspect]
     Indication: CARDIAC FAILURE CONGESTIVE
     Dosage: 81 MG EVERY DAY PO
     Route: 048
     Dates: start: 20070604, end: 20090714

REACTIONS (9)
  - ANAEMIA [None]
  - DIZZINESS [None]
  - DYSPNOEA [None]
  - GASTRIC HAEMORRHAGE [None]
  - HAEMORRHAGE [None]
  - HYPOTENSION [None]
  - INTERNATIONAL NORMALISED RATIO ABNORMAL [None]
  - NAUSEA [None]
  - VOMITING [None]
